FAERS Safety Report 7722266-2 (Version None)
Quarter: 2011Q3

REPORT INFORMATION
  Report Type: 
  Country: None (occurrence: None)
  Receive Date: 20110831
  Receipt Date: 20110818
  Transmission Date: 20111222
  Serious: Yes (Other)
  Sender: FDA-Public Use
  Company Number: CA-ELI_LILLY_AND_COMPANY-CA201108005742

PATIENT
  Sex: Female

DRUGS (7)
  1. VENTOLIN [Concomitant]
  2. ZYPREXA [Suspect]
     Dosage: 10 MG, UNKNOWN
     Dates: start: 19990308
  3. BUPROPION HCL [Concomitant]
  4. ATIVAN [Concomitant]
  5. RISPERDAL [Concomitant]
  6. PAXIL [Concomitant]
  7. FLOVENT [Concomitant]

REACTIONS (5)
  - RETINAL EXUDATES [None]
  - WEIGHT INCREASED [None]
  - CATARACT [None]
  - DIABETES MELLITUS [None]
  - BLOOD PRESSURE INCREASED [None]
